FAERS Safety Report 9222070 (Version 2)
Quarter: 2013Q4

REPORT INFORMATION
  Report Type: Spontaneous
  Country: US (occurrence: US)
  Receive Date: 20130410
  Receipt Date: 20131206
  Transmission Date: 20140711
  Serious: No
  Sender: FDA-Public Use
  Company Number: US-PFIZER INC-2013109514

PATIENT
  Age: 85 Year
  Sex: Female
  Weight: 111 kg

DRUGS (5)
  1. TIKOSYN [Suspect]
     Indication: ATRIAL FIBRILLATION
     Dosage: 0.25 MG, 2X/DAY
     Route: 048
     Dates: start: 1998
  2. LASIX [Concomitant]
     Indication: FLUID RETENTION
     Dosage: 80 MG, 1X/DAY
  3. LASIX [Concomitant]
     Indication: HYPERTENSION
  4. SYNTHROID [Concomitant]
     Indication: THYROID DISORDER
     Dosage: 0.25 MG, 1X/DAY
  5. METFORMIN [Concomitant]
     Indication: GLUCOSE TOLERANCE IMPAIRED
     Dosage: 500 MG, 1X/DAY
     Route: 048

REACTIONS (1)
  - Tremor [Unknown]
